FAERS Safety Report 25690808 (Version 1)
Quarter: 2025Q3

REPORT INFORMATION
  Report Type: Spontaneous
  Country: CH (occurrence: CH)
  Receive Date: 20250818
  Receipt Date: 20250818
  Transmission Date: 20251020
  Serious: Yes (Hospitalization)
  Sender: SANDOZ
  Company Number: CH-SANDOZ-SDZ2025CH059111

PATIENT
  Sex: Female

DRUGS (4)
  1. CYCLOPHOSPHAMIDE [Suspect]
     Active Substance: CYCLOPHOSPHAMIDE
     Indication: Product used for unknown indication
     Route: 065
     Dates: start: 20250304
  2. EPIRUBICIN [Suspect]
     Active Substance: EPIRUBICIN
     Indication: Product used for unknown indication
     Route: 065
     Dates: start: 20250304
  3. ZIEXTENZO [Suspect]
     Active Substance: PEGFILGRASTIM-BMEZ
     Indication: Product used for unknown indication
     Route: 065
     Dates: start: 20250305
  4. ZIEXTENZO [Suspect]
     Active Substance: PEGFILGRASTIM-BMEZ
     Route: 065
     Dates: start: 20250305

REACTIONS (5)
  - Congenital aplasia [Unknown]
  - Pyrexia [Unknown]
  - Mucosal inflammation [Unknown]
  - Neutrophil count decreased [Unknown]
  - Drug ineffective [Unknown]

NARRATIVE: CASE EVENT DATE: 20250301
